FAERS Safety Report 15804865 (Version 1)
Quarter: 2019Q1

REPORT INFORMATION
  Report Type: Spontaneous
  Country: GB (occurrence: GB)
  Receive Date: 20190109
  Receipt Date: 20190109
  Transmission Date: 20190417
  Serious: Yes (Other)
  Sender: FDA-Public Use
  Company Number: GB-TEVA-2019-GB-995562

PATIENT
  Age: 57 Year
  Sex: Female
  Weight: 62 kg

DRUGS (2)
  1. TERBINAFINE. [Suspect]
     Active Substance: TERBINAFINE
     Dosage: TAKE NAIL CLIPPINGS THEN CONSIDER THERAPY
     Dates: start: 20181031
  2. LANSOPRAZOLE. [Concomitant]
     Active Substance: LANSOPRAZOLE
     Dosage: 1 DOSAGE FORMS DAILY;
     Dates: start: 20180925, end: 20181023

REACTIONS (1)
  - Liver function test increased [Recovered/Resolved]

NARRATIVE: CASE EVENT DATE: 20181206
